FAERS Safety Report 23528675 (Version 1)
Quarter: 2024Q1

REPORT INFORMATION
  Report Type: Spontaneous
  Country: US (occurrence: US)
  Receive Date: 20240215
  Receipt Date: 20240215
  Transmission Date: 20240410
  Serious: Yes (Other)
  Sender: FDA-Public Use
  Company Number: US-BRISTOL-MYERS SQUIBB COMPANY-2024-022833

PATIENT
  Age: 79 Year
  Sex: Male

DRUGS (1)
  1. LENALIDOMIDE [Suspect]
     Active Substance: LENALIDOMIDE
     Indication: Plasma cell myeloma
     Dosage: FREQUENCY- TAKE 1 WHOLE CAPSULE BY MOUTH WITH WATER ONCE DAILY ON DAYS 1-21 OF 28 DAY CYCLE. DO NOT
     Route: 048
     Dates: start: 20230124, end: 20231225

REACTIONS (1)
  - Product dose omission issue [Unknown]
